FAERS Safety Report 9742514 (Version 1)
Quarter: 2013Q4

REPORT INFORMATION
  Report Type: Spontaneous
  Country: US (occurrence: US)
  Receive Date: 20131210
  Receipt Date: 20131210
  Transmission Date: 20140711
  Serious: No
  Sender: FDA-Public Use
  Company Number: US-ENDO PHARMACEUTICALS INC.-PRED20130017

PATIENT
  Age: 48 Year
  Sex: Female

DRUGS (1)
  1. PREDNISONE TABLETS 10MG [Suspect]
     Indication: CHRONIC OBSTRUCTIVE PULMONARY DISEASE
     Dosage: 10MG
     Route: 048
     Dates: start: 20130407, end: 20130411

REACTIONS (2)
  - Generalised oedema [Recovering/Resolving]
  - Tachycardia [Unknown]
